FAERS Safety Report 8406514-1 (Version None)
Quarter: 2012Q2

REPORT INFORMATION
  Report Type: 
  Country: None (occurrence: None)
  Receive Date: 20120604
  Receipt Date: 20120529
  Transmission Date: 20120825
  Serious: No
  Sender: FDA-Public Use
  Company Number: US-PFIZER INC-2012129641

PATIENT
  Sex: Male
  Weight: 79.365 kg

DRUGS (1)
  1. IBUPROFEN (ADVIL) [Suspect]
     Indication: ARTHRALGIA
     Dosage: 4X200MG TABLET, UNK
     Route: 048
     Dates: start: 20120525, end: 20120529

REACTIONS (2)
  - DIZZINESS [None]
  - SOMNOLENCE [None]
